FAERS Safety Report 5886214-2 (Version None)
Quarter: 2008Q3

REPORT INFORMATION
  Report Type: 
  Country: None (occurrence: None)
  Receive Date: 20080917
  Receipt Date: 20080904
  Transmission Date: 20090109
  Serious: Yes (Other)
  Sender: FDA-Public Use
  Company Number: JP-ELI_LILLY_AND_COMPANY-JP200808006270

PATIENT
  Sex: Male

DRUGS (2)
  1. GEMZAR [Suspect]
     Indication: PANCREATIC CARCINOMA
     Dosage: 800-1000 MG/BODY
     Route: 042
     Dates: start: 20060315, end: 20080307
  2. GEMZAR [Suspect]
     Dosage: 800-1000 MG/BODY
     Route: 042
     Dates: start: 20080411, end: 20080723

REACTIONS (2)
  - RASH [None]
  - SKIN ULCER [None]
